FAERS Safety Report 11311313 (Version 2)
Quarter: 2015Q3

REPORT INFORMATION
  Report Type: Spontaneous
  Country: DE (occurrence: DE)
  Receive Date: 20150727
  Receipt Date: 20150826
  Transmission Date: 20151125
  Serious: Yes (Disabling)
  Sender: FDA-Public Use
  Company Number: DE-AMGEN-DEUSP2015074057

PATIENT
  Age: 80 Year
  Sex: Female

DRUGS (10)
  1. PANTOPRAZOLE SODIUM. [Concomitant]
     Active Substance: PANTOPRAZOLE SODIUM
     Indication: PROPHYLAXIS
     Dosage: 40 MG,1 TIME A DAY
     Route: 048
     Dates: start: 20150325
  2. BISOPROLOL HEMIFUMARATE [Concomitant]
     Active Substance: BISOPROLOL FUMARATE
     Indication: HYPERTENSION
     Dosage: 5/25 MG 1-0-0
     Route: 048
     Dates: start: 20150325
  3. DOXORUBICIN [Concomitant]
     Active Substance: DOXORUBICIN
     Indication: B-CELL LYMPHOMA
     Dosage: 85 MG, 1 TIME IN 14 DAYS FOR 1 DAY
     Route: 042
     Dates: start: 20150507, end: 20150507
  4. PEGFILGRASTIM [Suspect]
     Active Substance: PEGFILGRASTIM
     Indication: B-CELL LYMPHOMA
     Dosage: 6 MG, 1 TIME IN 2 WEEK (S) FOR 1 DAY (S)
     Route: 058
     Dates: start: 20150509, end: 20150509
  5. RITUXIMAB [Concomitant]
     Active Substance: RITUXIMAB
     Indication: B-CELL LYMPHOMA
     Dosage: 650 MG, 1 TIME IN 14 DAYS FOR 1 DAY
     Route: 042
     Dates: start: 20150708, end: 20150708
  6. MOLSIDOMINE [Concomitant]
     Active Substance: MOLSIDOMINE
     Indication: ANTIANGIOGENIC THERAPY
     Dosage: 4 MG, 1 TIME A DAY
     Route: 048
     Dates: start: 20150325
  7. VINCRISTINE [Suspect]
     Active Substance: VINCRISTINE
     Indication: B-CELL LYMPHOMA
     Dosage: 3.4 MG, 1 TIME IN 14 DAYS FOR 1 DAY
     Route: 042
     Dates: start: 20150507, end: 20150507
  8. PREDNISOLONE. [Concomitant]
     Active Substance: PREDNISOLONE
     Indication: B-CELL LYMPHOMA
     Dosage: 5 TAGE, 1-0-0, EVERY 14 DAYS FOR 5 DAYS
     Route: 048
     Dates: start: 20150507, end: 20150511
  9. RIVAROXABAN [Concomitant]
     Active Substance: RIVAROXABAN
     Indication: PULMONARY EMBOLISM
     Dosage: 20 MG MILLIGRAMS, 1 TIME A DAY
     Route: 048
     Dates: start: 20150529
  10. CYCLOPHOSPHAMIDE. [Concomitant]
     Active Substance: CYCLOPHOSPHAMIDE
     Indication: B-CELL LYMPHOMA
     Dosage: 1280 MG, 1 TIME IN 14 DAYS FOR 1 DAY
     Route: 042
     Dates: start: 20150507, end: 20150507

REACTIONS (1)
  - Peripheral sensory neuropathy [Not Recovered/Not Resolved]

NARRATIVE: CASE EVENT DATE: 20150714
